FAERS Safety Report 8598271-3 (Version None)
Quarter: 2012Q3

REPORT INFORMATION
  Report Type: 
  Country: None (occurrence: None)
  Receive Date: 20120816
  Receipt Date: 20120806
  Transmission Date: 20120928
  Serious: No
  Sender: FDA-Public Use
  Company Number: US-ASTRAZENECA-2012SE55335

PATIENT
  Age: 78 Year
  Sex: Female

DRUGS (2)
  1. PULMICORT [Suspect]
     Indication: CHRONIC OBSTRUCTIVE PULMONARY DISEASE
     Route: 055
  2. XOPENEX [Concomitant]

REACTIONS (2)
  - AGITATION [None]
  - OFF LABEL USE [None]
